FAERS Safety Report 12300635 (Version 2)
Quarter: 2016Q2

REPORT INFORMATION
  Report Type: Other
  Country: JP (occurrence: JP)
  Receive Date: 20160425
  Receipt Date: 20160523
  Transmission Date: 20160815
  Serious: Yes (Other)
  Sender: FDA-Public Use
  Company Number: JP-ACTELION-A-CH2016-134803

PATIENT

DRUGS (1)
  1. TRACLEER [Suspect]
     Active Substance: BOSENTAN
     Indication: SKIN ULCER
     Route: 048

REACTIONS (1)
  - Pancytopenia [Unknown]
